FAERS Safety Report 8462448-8 (Version None)
Quarter: 2012Q2

REPORT INFORMATION
  Report Type: 
  Country: None (occurrence: None)
  Receive Date: 20120625
  Receipt Date: 20120619
  Transmission Date: 20120825
  Serious: Yes (Death, Other)
  Sender: FDA-Public Use
  Company Number: JP-JNJFOC-20100606549

PATIENT
  Sex: Female
  Weight: 62 kg

DRUGS (14)
  1. DOXORUBICIN HYDROCHLORIDE [Suspect]
     Indication: OVARIAN CANCER RECURRENT
     Dosage: CYCLE 2
     Route: 042
     Dates: start: 20100301, end: 20100301
  2. NEUTROGIN [Concomitant]
     Indication: NEUTROPHIL COUNT DECREASED
     Route: 065
     Dates: start: 20100318, end: 20100320
  3. NEUTROGIN [Concomitant]
     Route: 065
     Dates: start: 20100416, end: 20100418
  4. LOBU [Concomitant]
     Indication: PRODUCT USED FOR UNKNOWN INDICATION
     Route: 048
     Dates: start: 20100202, end: 20100208
  5. PROCHLORPERAZINE [Concomitant]
     Indication: OVARIAN CANCER RECURRENT
     Route: 048
     Dates: start: 20100212, end: 20100228
  6. BETAMETHASONE [Concomitant]
     Route: 048
     Dates: start: 20100318
  7. BETAMETHASONE [Concomitant]
     Route: 048
     Dates: start: 20100222
  8. MUCOSTA [Concomitant]
     Indication: PROPHYLAXIS
     Route: 048
     Dates: start: 20100202, end: 20100204
  9. NEUTROGIN [Concomitant]
     Route: 065
     Dates: start: 20100215, end: 20100217
  10. DECADRON [Concomitant]
     Indication: PROPHYLAXIS
     Route: 048
     Dates: start: 20100202, end: 20100204
  11. CONCENTRATED HUMAN RED BLOOD CELLS [Concomitant]
     Route: 042
     Dates: start: 20100215, end: 20100216
  12. DOXORUBICIN HYDROCHLORIDE [Suspect]
     Dosage: CYCLE 1
     Route: 042
     Dates: start: 20100201, end: 20100201
  13. MAGMITT [Concomitant]
     Indication: PROPHYLAXIS
     Route: 048
     Dates: start: 20100202, end: 20100401
  14. NAPROXEN [Concomitant]
     Indication: PRODUCT USED FOR UNKNOWN INDICATION
     Route: 048
     Dates: start: 20100209, end: 20100221

REACTIONS (4)
  - RED BLOOD CELL COUNT DECREASED [None]
  - ANAEMIA [None]
  - OVARIAN CANCER RECURRENT [None]
  - NEUTROPHIL COUNT DECREASED [None]
